FAERS Safety Report 24861624 (Version 1)
Quarter: 2025Q1

REPORT INFORMATION
  Report Type: Report from Study
  Country: US (occurrence: US)
  Receive Date: 20250120
  Receipt Date: 20250120
  Transmission Date: 20250409
  Serious: Yes (Hospitalization)
  Sender: ABBVIE
  Company Number: US-ABBVIE-6091666

PATIENT
  Age: 32 Year
  Sex: Male

DRUGS (2)
  1. IMBRUVICA [Suspect]
     Active Substance: IBRUTINIB
     Indication: Chronic graft versus host disease
     Route: 048
     Dates: start: 20240417
  2. REZUROCK [Concomitant]
     Active Substance: BELUMOSUDIL
     Indication: Chronic graft versus host disease
     Dates: start: 20231211

REACTIONS (4)
  - Knee arthroplasty [Unknown]
  - Asthenia [Unknown]
  - Pain [Unknown]
  - Depressed mood [Unknown]

NARRATIVE: CASE EVENT DATE: 20250101
